FAERS Safety Report 7055494-2 (Version None)
Quarter: 2010Q4

REPORT INFORMATION
  Report Type: 
  Country: None (occurrence: None)
  Receive Date: 20101021
  Receipt Date: 20101014
  Transmission Date: 20110411
  Serious: Yes (Hospitalization)
  Sender: FDA-Public Use
  Company Number: US-SANOFI-AVENTIS-2010SA063380

PATIENT
  Age: 87 Year
  Sex: Male

DRUGS (11)
  1. MULTAQ [Suspect]
     Indication: ATRIAL FIBRILLATION
     Route: 048
     Dates: start: 20101007, end: 20101007
  2. MULTAQ [Suspect]
     Route: 048
     Dates: start: 20101009
  3. IMDUR [Concomitant]
     Dates: start: 20100201
  4. LASIX [Concomitant]
  5. SYNTHROID [Concomitant]
     Indication: THYROID DISORDER
  6. PLAVIX [Concomitant]
     Indication: STENT PLACEMENT
  7. SIMVASTATIN [Concomitant]
  8. TERAZOSIN HCL [Concomitant]
  9. VALSARTAN [Concomitant]
  10. METOPROLOL TARTRATE [Concomitant]
     Indication: HYPERTENSION
  11. VITAMIN B6 [Concomitant]

REACTIONS (3)
  - CARDIAC FAILURE CONGESTIVE [None]
  - DYSPNOEA [None]
  - FLUID RETENTION [None]
